FAERS Safety Report 5525281-2 (Version None)
Quarter: 2007Q4

REPORT INFORMATION
  Report Type: 
  Country: None (occurrence: None)
  Receive Date: 20071120
  Receipt Date: 20071120
  Transmission Date: 20080405
  Serious: Yes (Other)
  Sender: FDA-Public Use
  Company Number: None

PATIENT
  Sex: Male

DRUGS (5)
  1. LITHIUM CARBONATE [Suspect]
     Indication: BIPOLAR DISORDER
     Dosage: 150 MG, 300 MG QAM, QHS PO
     Route: 048
     Dates: start: 20071113, end: 20071116
  2. LITHIUM CARBONATE [Suspect]
     Indication: SCHIZOAFFECTIVE DISORDER
     Dosage: 150 MG, 300 MG QAM, QHS PO
     Route: 048
     Dates: start: 20071113, end: 20071116
  3. ZYPREXA [Concomitant]
  4. LEVOTHYROXINE SODIUM [Concomitant]
  5. ZOCOR [Concomitant]

REACTIONS (2)
  - DELUSION [None]
  - NYSTAGMUS [None]
